FAERS Safety Report 8104381 (Version 2)
Quarter: 2012Q4

REPORT INFORMATION
  Report Type: 
  Country: US (occurrence: US)
  Receive Date: 20110824
  Receipt Date: 20121120
  Transmission Date: 20130627
  Serious: Yes (Hospitalization)
  Sender: FDA-Public Use
  Company Number: US-GLAXOSMITHKLINE-A0928239A

PATIENT
  Age: 72 Year
  Sex: Male

DRUGS (5)
  1. AVANDIA [Suspect]
     Indication: DIABETES MELLITUS
     Dosage: 4MG Per day
     Route: 048
  2. COUMADIN [Concomitant]
     Indication: CEREBROVASCULAR ACCIDENT
  3. COZAAR [Concomitant]
  4. LIPITOR [Concomitant]
  5. LORTAB [Concomitant]

REACTIONS (5)
  - Cerebrovascular accident [Not Recovered/Not Resolved]
  - Myocardial infarction [Unknown]
  - Cardiac failure congestive [Unknown]
  - Lung disorder [Unknown]
  - Pain [Unknown]
